FAERS Safety Report 23609777 (Version 1)
Quarter: 2024Q1

REPORT INFORMATION
  Report Type: Spontaneous
  Country: FR (occurrence: FR)
  Receive Date: 20240308
  Receipt Date: 20240308
  Transmission Date: 20240410
  Serious: Yes (Hospitalization, Other)
  Sender: FDA-Public Use
  Company Number: FR-CELLTRION INC.-2024FR005424

PATIENT

DRUGS (2)
  1. TRUXIMA [Suspect]
     Active Substance: RITUXIMAB-ABBS
     Indication: Waldenstrom^s macroglobulinaemia
     Dosage: 750 MILLIGRAM, 1 DAY
     Route: 042
     Dates: start: 20200707, end: 20200707
  2. BENDAMUSTINE HYDROCHLORIDE [Suspect]
     Active Substance: BENDAMUSTINE HYDROCHLORIDE
     Indication: Waldenstrom^s macroglobulinaemia
     Dosage: 140 MILLIGRAM, 1 DAY
     Route: 042
     Dates: start: 20200708, end: 20200708

REACTIONS (4)
  - Cardiac failure [Not Recovered/Not Resolved]
  - Renal failure [Recovered/Resolved]
  - Myocardial infarction [Recovered/Resolved with Sequelae]
  - Intentional product use issue [Unknown]

NARRATIVE: CASE EVENT DATE: 20200717
